FAERS Safety Report 7429880-2 (Version None)
Quarter: 2011Q2

REPORT INFORMATION
  Report Type: 
  Country: None (occurrence: None)
  Receive Date: 20110421
  Receipt Date: 20110408
  Transmission Date: 20111010
  Serious: Yes (Hospitalization, Other)
  Sender: FDA-Public Use
  Company Number: BR-GENENTECH-312768

PATIENT
  Sex: Female
  Weight: 52 kg

DRUGS (9)
  1. LYRICA [Suspect]
     Indication: PERIPHERAL SENSORY NEUROPATHY
     Dosage: 75 MG, UNK
     Route: 048
  2. ARADOIS [Concomitant]
     Indication: PRODUCT USED FOR UNKNOWN INDICATION
     Dosage: 50 MG, UNK
  3. RITUXIMAB [Suspect]
     Indication: LYMPHOMA
     Dosage: UNK
     Route: 065
     Dates: start: 20100201, end: 20100215
  4. MIRTAZAPINE [Concomitant]
     Indication: PRODUCT USED FOR UNKNOWN INDICATION
     Dosage: 30 MG, UNK
  5. RITUXIMAB [Suspect]
     Indication: RHEUMATOID ARTHRITIS
     Dosage: UNK
     Route: 065
     Dates: start: 20040101
  6. ATENOLOL [Concomitant]
     Indication: PRODUCT USED FOR UNKNOWN INDICATION
     Dosage: 25 MG, UNK
  7. LYRICA [Suspect]
     Dosage: 0.5 DF, UNK
     Route: 048
  8. BENERVA [Concomitant]
     Indication: PRODUCT USED FOR UNKNOWN INDICATION
     Dosage: 300 MG, UNK
  9. VITAMIN B-12 [Concomitant]
     Indication: PRODUCT USED FOR UNKNOWN INDICATION
     Dosage: 5000 A?G, UNK

REACTIONS (10)
  - DIZZINESS [None]
  - RHEUMATIC FEVER [None]
  - PERIPHERAL SENSORY NEUROPATHY [None]
  - SOMNOLENCE [None]
  - PAIN [None]
  - CARDIAC DISORDER [None]
  - PAIN IN EXTREMITY [None]
  - MALAISE [None]
  - INSOMNIA [None]
  - ARTHRALGIA [None]
